FAERS Safety Report 8618125-3 (Version None)
Quarter: 2012Q3

REPORT INFORMATION
  Report Type: 
  Country: None (occurrence: None)
  Receive Date: 20120824
  Receipt Date: 20110204
  Transmission Date: 20120928
  Serious: Yes (Hospitalization)
  Sender: FDA-Public Use
  Company Number: US-ELI_LILLY_AND_COMPANY-US201102001273

PATIENT
  Sex: Female
  Weight: 92.971 kg

DRUGS (1)
  1. PRASUGREL HYDROCHLORIDE [Suspect]
     Dates: start: 20101020

REACTIONS (1)
  - CHEST PAIN [None]
